FAERS Safety Report 13929439 (Version 1)
Quarter: 2017Q3

REPORT INFORMATION
  Report Type: Spontaneous
  Country: BR (occurrence: BR)
  Receive Date: 20170901
  Receipt Date: 20170901
  Transmission Date: 20171127
  Serious: Yes (Hospitalization)
  Sender: FDA-Public Use
  Company Number: BR-SA-2017SA149319

PATIENT
  Sex: Female
  Weight: 81 kg

DRUGS (7)
  1. CLEXANE SAFETY LOCK [Suspect]
     Active Substance: ENOXAPARIN SODIUM
     Indication: THROMBOSIS
     Dosage: DURATION: UNTIL THE FORTIETH DAY AFTER DELIVERY
     Route: 058
     Dates: start: 20170408
  2. FOLIC ACID. [Concomitant]
     Active Substance: FOLIC ACID
     Indication: VITAMIN SUPPLEMENTATION
     Route: 048
  3. SOMALGIN CARDIO [Concomitant]
     Active Substance: ASPIRIN\DIHYDROXYALUMINUM AMINOACETATE ANHYDROUS\MAGNESIUM CARBONATE
     Indication: SUPPLEMENTATION THERAPY
     Dosage: 1 TABLET PER DAY / 81MG
     Route: 048
     Dates: start: 2017
  4. CALCIUM [Concomitant]
     Active Substance: CALCIUM
     Indication: MINERAL SUPPLEMENTATION
     Route: 048
  5. CLEXANE SAFETY LOCK [Suspect]
     Active Substance: ENOXAPARIN SODIUM
     Indication: HYPERCOAGULATION
     Dosage: DURATION: UNTIL THE FORTIETH DAY AFTER DELIVERY
     Route: 058
     Dates: start: 20170408
  6. UTROGESTAN [Concomitant]
     Active Substance: PROGESTERONE
     Indication: PROPHYLAXIS
     Dosage: 200 MG/TABLETS, 1 TABLET PER DAY
     Route: 048
     Dates: start: 20170424
  7. PROGESTAN [Concomitant]
     Active Substance: PROGESTERONE
     Indication: SUPPLEMENTATION THERAPY
     Route: 048

REACTIONS (2)
  - Cervical incompetence [Unknown]
  - Exposure during pregnancy [Unknown]
